FAERS Safety Report 17838131 (Version 1)
Quarter: 2020Q2

REPORT INFORMATION
  Report Type: Spontaneous
  Country: US (occurrence: US)
  Receive Date: 20200528
  Receipt Date: 20200528
  Transmission Date: 20200714
  Serious: No
  Sender: FDA-Public Use
  Company Number: US-TAKEDA-2020TUS023897

PATIENT
  Age: 74 Year
  Sex: Male
  Weight: 102.04 kg

DRUGS (2)
  1. DEXILANT [Suspect]
     Active Substance: DEXLANSOPRAZOLE
     Indication: GASTROOESOPHAGEAL REFLUX DISEASE
     Dosage: UNK
     Route: 065
     Dates: start: 201912
  2. DEXILANT [Suspect]
     Active Substance: DEXLANSOPRAZOLE
     Indication: SENSATION OF FOREIGN BODY

REACTIONS (4)
  - Nausea [Recovered/Resolved]
  - Therapeutic product effect decreased [Recovered/Resolved]
  - Dysgeusia [Recovered/Resolved]
  - Dizziness [Recovered/Resolved]
